FAERS Safety Report 13012406 (Version 2)
Quarter: 2016Q4

REPORT INFORMATION
  Report Type: Spontaneous
  Country: US (occurrence: US)
  Receive Date: 20161209
  Receipt Date: 20161209
  Transmission Date: 20170207
  Serious: Yes (Other)
  Sender: FDA-Public Use
  Company Number: US-BAXALTA-2016BLT008974

PATIENT
  Age: 30 Year
  Sex: Female

DRUGS (1)
  1. HYQVIA [Suspect]
     Active Substance: HUMAN IMMUNOGLOBULIN G\HYALURONIDASE RECOMBINANT HUMAN
     Indication: PRIMARY IMMUNODEFICIENCY SYNDROME
     Dosage: RAMP UP
     Route: 058
     Dates: start: 20161121, end: 20161121

REACTIONS (8)
  - Peripheral swelling [Recovering/Resolving]
  - Infusion site pain [Unknown]
  - Infusion site swelling [Not Recovered/Not Resolved]
  - Dyspnoea [Recovered/Resolved]
  - Swelling face [Recovering/Resolving]
  - Urine output decreased [Recovering/Resolving]
  - Hypersensitivity [Recovering/Resolving]
  - Weight increased [Recovering/Resolving]

NARRATIVE: CASE EVENT DATE: 2016
